FAERS Safety Report 16544011 (Version 2)
Quarter: 2019Q3

REPORT INFORMATION
  Report Type: Spontaneous
  Country: FR (occurrence: FR)
  Receive Date: 20190709
  Receipt Date: 20190729
  Transmission Date: 20191004
  Serious: Yes (Hospitalization)
  Sender: FDA-Public Use
  Company Number: FR-SA-2019SA183053

PATIENT
  Age: 39 Year
  Sex: Male
  Weight: 90 kg

DRUGS (11)
  1. RIFADINE [Suspect]
     Active Substance: RIFAMPIN
     Indication: TUBERCULOSIS
     Dosage: 600 MG, BID
     Route: 048
     Dates: start: 20190625, end: 20190627
  2. LEVOFLOXACINE [LEVOFLOXACIN] [Concomitant]
     Active Substance: LEVOFLOXACIN
  3. BACLOFENE [Concomitant]
     Active Substance: BACLOFEN
  4. METHADONE [Interacting]
     Active Substance: METHADONE HYDROCHLORIDE
     Indication: DRUG DEPENDENCE
     Dosage: 110 MG
     Route: 048
  5. NOCTAMIDE [Concomitant]
     Active Substance: LORMETAZEPAM
  6. METHADONE [Interacting]
     Active Substance: METHADONE HYDROCHLORIDE
     Indication: ANALGESIC INTERVENTION SUPPORTIVE THERAPY
     Dosage: 135 MG, QD
     Route: 048
  7. SULFARLEM [Concomitant]
     Active Substance: ANETHOLTRITHION
  8. PAROXETINE. [Concomitant]
     Active Substance: PAROXETINE
     Indication: ANXIOLYTIC THERAPY
     Dosage: 1 DF, QD
     Route: 048
  9. TEMESTA [LORAZEPAM] [Concomitant]
     Active Substance: LORAZEPAM
  10. SERESTA [Concomitant]
     Active Substance: OXAZEPAM
     Indication: ANXIOLYTIC THERAPY
     Dosage: 3 DF, QD
     Route: 048
  11. NICOTINE. [Concomitant]
     Active Substance: NICOTINE

REACTIONS (2)
  - Drug withdrawal syndrome [Recovered/Resolved]
  - Drug interaction [Unknown]

NARRATIVE: CASE EVENT DATE: 20190626
